FAERS Safety Report 21866406 (Version 1)
Quarter: 2023Q1

REPORT INFORMATION
  Report Type: Report from Study
  Country: US (occurrence: US)
  Receive Date: 20230116
  Receipt Date: 20230116
  Transmission Date: 20230418
  Serious: Yes (Other)
  Sender: FDA-Public Use
  Company Number: US-ABBVIE-4270419

PATIENT
  Age: 63 Year
  Sex: Female

DRUGS (2)
  1. SKYRIZI [Suspect]
     Active Substance: RISANKIZUMAB-RZAA
     Indication: Psoriasis
     Route: 058
  2. SKYRIZI [Suspect]
     Active Substance: RISANKIZUMAB-RZAA
     Route: 058
     Dates: start: 20191205

REACTIONS (7)
  - Knee arthroplasty [Recovering/Resolving]
  - Mobility decreased [Recovering/Resolving]
  - Spinal operation [Recovered/Resolved]
  - Urinary tract infection [Recovering/Resolving]
  - Rash [Not Recovered/Not Resolved]
  - Knee arthroplasty [Recovering/Resolving]
  - Weight decreased [Unknown]

NARRATIVE: CASE EVENT DATE: 20211101
